FAERS Safety Report 16790988 (Version 2)
Quarter: 2019Q4

REPORT INFORMATION
  Report Type: Report from Study
  Country: GB (occurrence: GB)
  Receive Date: 20190910
  Receipt Date: 20191024
  Transmission Date: 20200122
  Serious: Yes (Other)
  Sender: FDA-Public Use
  Company Number: GB-TEVA-2019-GB-1104234

PATIENT
  Sex: Male

DRUGS (3)
  1. MIRABEGRON [Concomitant]
     Active Substance: MIRABEGRON
  2. SOLIFENACIN [Concomitant]
     Active Substance: SOLIFENACIN
  3. COPAXONE [Suspect]
     Active Substance: GLATIRAMER ACETATE
     Indication: MULTIPLE SCLEROSIS
     Route: 058

REACTIONS (10)
  - Chest discomfort [Unknown]
  - Fear [Unknown]
  - Feeling abnormal [Unknown]
  - Drug ineffective [Unknown]
  - Chest pain [Unknown]
  - Paraesthesia [Unknown]
  - Injection site reaction [Unknown]
  - Injection site reaction [Recovered/Resolved]
  - Injection site pain [Unknown]
  - Panic attack [Recovered/Resolved]

NARRATIVE: CASE EVENT DATE: 2019
